FAERS Safety Report 4845358-4 (Version None)
Quarter: 2005Q4

REPORT INFORMATION
  Report Type: 
  Country: None (occurrence: None)
  Receive Date: 20051205
  Receipt Date: 20051205
  Transmission Date: 20060501
  Serious: Yes (Hospitalization)
  Sender: FDA-Public Use
  Company Number: IT-GLAXOSMITHKLINE-B0402605A

PATIENT
  Age: 56 Year
  Sex: Female

DRUGS (1)
  1. AUGMENTIN [Suspect]
     Indication: PHARYNGITIS
     Dosage: 1G PER DAY
     Route: 048
     Dates: start: 20051114, end: 20051114

REACTIONS (2)
  - HYPERTENSION [None]
  - OEDEMA MOUTH [None]
